FAERS Safety Report 6127428-6 (Version None)
Quarter: 2009Q1

REPORT INFORMATION
  Report Type: 
  Country: None (occurrence: None)
  Receive Date: 20090323
  Receipt Date: 20090310
  Transmission Date: 20090719
  Serious: Yes (Life-Threatening, Hospitalization)
  Sender: FDA-Public Use
  Company Number: DE-TEVA-187754ISR

PATIENT
  Age: 52 Year
  Sex: Male

DRUGS (3)
  1. BACLOFEN [Suspect]
     Indication: MUSCLE SPASTICITY
     Route: 048
  2. CLONAZEPAM [Suspect]
     Indication: EPILEPSY
     Route: 048
  3. PIPAMPERONE HYDROCHLORIDE [Suspect]
     Indication: CEREBROVASCULAR ACCIDENT
     Route: 048

REACTIONS (1)
  - RESPIRATORY FAILURE [None]
